FAERS Safety Report 24789245 (Version 1)
Quarter: 2024Q4

REPORT INFORMATION
  Report Type: Spontaneous
  Country: US (occurrence: US)
  Receive Date: 20241230
  Receipt Date: 20241230
  Transmission Date: 20250115
  Serious: Yes (Other)
  Sender: PFIZER
  Company Number: US-PFIZER INC-PV202400169674

PATIENT
  Age: 72 Year
  Sex: Female

DRUGS (1)
  1. TUKYSA [Suspect]
     Active Substance: TUCATINIB
     Dosage: 150MG; 2 TABLETS EVERY 12 HOURS

REACTIONS (2)
  - Gastrointestinal infection [Unknown]
  - Gastric ulcer [Unknown]
